FAERS Safety Report 16119273 (Version 3)
Quarter: 2019Q2

REPORT INFORMATION
  Report Type: Spontaneous
  Country: JP (occurrence: JP)
  Receive Date: 20190326
  Receipt Date: 20190516
  Transmission Date: 20190711
  Serious: Yes (Hospitalization)
  Sender: FDA-Public Use
  Company Number: JP-BAUSCH-BL-2019-009164

PATIENT
  Age: 6 Decade
  Sex: Male

DRUGS (3)
  1. MYSLEE [Concomitant]
     Active Substance: ZOLPIDEM TARTRATE
     Indication: PRODUCT USED FOR UNKNOWN INDICATION
     Dates: start: 201309
  2. LENDORMIN [Concomitant]
     Active Substance: BROTIZOLAM
     Indication: PRODUCT USED FOR UNKNOWN INDICATION
     Dates: start: 201408
  3. LUMICEF [Suspect]
     Active Substance: BRODALUMAB
     Indication: PSORIASIS
     Dosage: SYRINGE
     Route: 058
     Dates: start: 2018, end: 201903

REACTIONS (1)
  - Osteonecrosis [Recovered/Resolved]

NARRATIVE: CASE EVENT DATE: 20190318
